FAERS Safety Report 25656435 (Version 2)
Quarter: 2025Q3

REPORT INFORMATION
  Report Type: Spontaneous
  Country: EU (occurrence: EU)
  Receive Date: 20250807
  Receipt Date: 20250926
  Transmission Date: 20251020
  Serious: Yes (Hospitalization, Other)
  Sender: INCYTE
  Company Number: EU-002147023-NVSC2025ES122643

PATIENT
  Age: 57 Year

DRUGS (1)
  1. RUXOLITINIB [Suspect]
     Active Substance: RUXOLITINIB
     Indication: Myelofibrosis
     Dosage: 10 MG, Q12H

REACTIONS (5)
  - Portal hypertension [Unknown]
  - Pulmonary tuberculosis [Unknown]
  - Peritoneal tuberculosis [Unknown]
  - Serositis [Unknown]
  - Lymphadenopathy [Unknown]
